FAERS Safety Report 10846880 (Version 1)
Quarter: 2015Q1

REPORT INFORMATION
  Report Type: Spontaneous
  Country: US (occurrence: US)
  Receive Date: 20150220
  Receipt Date: 20150220
  Transmission Date: 20150721
  Serious: No
  Sender: FDA-Public Use
  Company Number: US-009507513-1502USA007962

PATIENT
  Age: 51 Year
  Sex: Female

DRUGS (18)
  1. PREDNISONE. [Suspect]
     Active Substance: PREDNISONE
     Dosage: INTERMITTENT, UP TO 60 MG/DAY
     Route: 048
  2. HYDROXYZINE [Suspect]
     Active Substance: HYDROXYZINE\HYDROXYZINE HYDROCHLORIDE
     Indication: URTICARIA
     Dosage: 9 X 10MG
  3. LEVOCETIRIZINE [Suspect]
     Active Substance: LEVOCETIRIZINE
     Dosage: UP TO 15 MG/DAY
  4. LIOTHYRONINE SODIUM. [Concomitant]
     Active Substance: LIOTHYRONINE SODIUM
     Indication: THYROIDECTOMY
  5. CETIRIZINE HYDROCHLORIDE. [Suspect]
     Active Substance: CETIRIZINE HYDROCHLORIDE
     Indication: URTICARIA
     Dosage: 2 X 10MG
  6. DIPHENHYDRAMINE HYDROCHLORIDE. [Suspect]
     Active Substance: DIPHENHYDRAMINE HYDROCHLORIDE
     Indication: URTICARIA
     Dosage: UP TO 50 MG/DAY
  7. DOXEPIN HYDROCHLORIDE. [Suspect]
     Active Substance: DOXEPIN HYDROCHLORIDE
     Indication: URTICARIA
     Dosage: UP TO 10 MG/DAY
  8. WARFARIN [Concomitant]
     Active Substance: WARFARIN
     Indication: PULMONARY EMBOLISM
  9. SINGULAIR [Suspect]
     Active Substance: MONTELUKAST SODIUM
     Indication: CHRONIC SPONTANEOUS URTICARIA
     Dosage: UP TO 10 MG/DAY
     Route: 048
  10. PREDNISONE. [Suspect]
     Active Substance: PREDNISONE
     Indication: CHRONIC SPONTANEOUS URTICARIA
     Dosage: 60 MG, QD
     Route: 048
  11. HYDROXYZINE [Suspect]
     Active Substance: HYDROXYZINE\HYDROXYZINE HYDROCHLORIDE
     Dosage: UP TO 90 MG/DAY
  12. LEVOCETIRIZINE [Suspect]
     Active Substance: LEVOCETIRIZINE
     Indication: URTICARIA
     Dosage: 3 X 5 MG
  13. WARFARIN [Concomitant]
     Active Substance: WARFARIN
     Indication: DEEP VEIN THROMBOSIS
  14. CIMETIDINE [Suspect]
     Active Substance: CIMETIDINE
     Indication: URTICARIA
     Dosage: 800 MG, QD
  15. CIMETIDINE [Suspect]
     Active Substance: CIMETIDINE
     Dosage: UP TO 800 MG/DAY
  16. CYCLOSPORINE. [Suspect]
     Active Substance: CYCLOSPORINE
     Indication: URTICARIA
     Dosage: UP TO 300 MG/DAY
  17. CETIRIZINE HYDROCHLORIDE. [Suspect]
     Active Substance: CETIRIZINE HYDROCHLORIDE
     Dosage: UP TO 20 MG/DAY
  18. MYCOPHENOLATE MOFETIL. [Suspect]
     Active Substance: MYCOPHENOLATE MOFETIL
     Indication: URTICARIA
     Dosage: UP TO 2000 MG/DAY

REACTIONS (1)
  - Drug ineffective [Unknown]
